FAERS Safety Report 4650233-4 (Version None)
Quarter: 2005Q2

REPORT INFORMATION
  Report Type: 
  Country: None (occurrence: None)
  Receive Date: 20050331
  Receipt Date: 20050126
  Transmission Date: 20051028
  Serious: No
  Sender: FDA-Public Use
  Company Number: 05P-163-0288898-00

PATIENT
  Age: 57 Year
  Sex: Female
  Weight: 109 kg

DRUGS (5)
  1. HUMIRA [Suspect]
     Indication: RHEUMATOID ARTHRITIS
     Dosage: 40 MG, 1 IN 2 WK, SUBCUTANEOUS
     Route: 058
     Dates: start: 20031201, end: 20040116
  2. PREDNISONE TAB [Concomitant]
  3. CELECOXIB [Concomitant]
  4. UNKNOWN BLOOD PRESSURE PILL [Concomitant]
  5. PROVELLA-14 [Concomitant]

REACTIONS (3)
  - EYE INFECTION [None]
  - INJECTION SITE PRURITUS [None]
  - PERIORBITAL CELLULITIS [None]
